FAERS Safety Report 19092780 (Version 3)
Quarter: 2021Q2

REPORT INFORMATION
  Report Type: Spontaneous
  Country: US (occurrence: US)
  Receive Date: 20210405
  Receipt Date: 20210514
  Transmission Date: 20210717
  Serious: No
  Sender: FDA-Public Use
  Company Number: US-ORGANON-O2104USA000224

PATIENT
  Sex: Female
  Weight: 108.39 kg

DRUGS (2)
  1. SIMVASTATIN TABLETS, USP [Concomitant]
     Active Substance: SIMVASTATIN
     Dosage: UNK
  2. NEXPLANON [Suspect]
     Active Substance: ETONOGESTREL
     Indication: CONTRACEPTION
     Dosage: 68/MG ONCE IN THE LEFT ARM
     Route: 059
     Dates: start: 20190327, end: 20190627

REACTIONS (4)
  - Device kink [Recovered/Resolved]
  - Mood swings [Unknown]
  - Aggression [Unknown]
  - Depression [Unknown]

NARRATIVE: CASE EVENT DATE: 2019
